FAERS Safety Report 6224169-1 (Version None)
Quarter: 2009Q2

REPORT INFORMATION
  Report Type: 
  Country: None (occurrence: None)
  Receive Date: 20090612
  Receipt Date: 20090312
  Transmission Date: 20091009
  Serious: No
  Sender: FDA-Public Use
  Company Number: US-ABBOTT-09P-163-0562641-00

PATIENT
  Sex: Female
  Weight: 80.358 kg

DRUGS (3)
  1. HUMIRA [Suspect]
     Indication: CROHN'S DISEASE
     Route: 058
     Dates: start: 20090128, end: 20090128
  2. HUMIRA [Suspect]
     Route: 058
     Dates: start: 20090211, end: 20090211
  3. HUMIRA [Suspect]
     Route: 058
     Dates: start: 20090225

REACTIONS (5)
  - CHILLS [None]
  - DIARRHOEA [None]
  - MUSCLE SPASMS [None]
  - NAUSEA [None]
  - VOMITING [None]
